FAERS Safety Report 9177910 (Version 3)
Quarter: 2013Q2

REPORT INFORMATION
  Report Type: Spontaneous
  Country: US (occurrence: US)
  Receive Date: 20130321
  Receipt Date: 20130412
  Transmission Date: 20140414
  Serious: No
  Sender: FDA-Public Use
  Company Number: US-PFIZER INC-2013091680

PATIENT
  Age: 63 Year
  Sex: Male
  Weight: 79 kg

DRUGS (6)
  1. NEURONTIN [Suspect]
     Indication: BACK PAIN
     Dosage: 300 MG, 3X/DAY
     Route: 048
     Dates: start: 20130220
  2. NEURONTIN [Suspect]
     Dosage: 600 MG, 3X/DAY
     Route: 048
  3. NEURONTIN [Suspect]
     Dosage: UNK (ONE CAPSULE 300MG AND A HALF CAPSULE OF 300 MG)
     Route: 048
  4. ROXICODONE [Concomitant]
     Indication: PAIN
     Dosage: 30 MG, 5 X / DAY
  5. ROXICODONE [Concomitant]
     Dosage: UNK
  6. PROZAC [Concomitant]
     Dosage: UNK, DAILY

REACTIONS (3)
  - Somnolence [Unknown]
  - Dizziness [Unknown]
  - Drug ineffective [Unknown]
